FAERS Safety Report 9088720 (Version 4)
Quarter: 2013Q2

REPORT INFORMATION
  Report Type: Spontaneous
  Country: JP (occurrence: JP)
  Receive Date: 20130201
  Receipt Date: 20130402
  Transmission Date: 20140414
  Serious: Yes (Other)
  Sender: FDA-Public Use
  Company Number: JP-PFIZER INC-2013032630

PATIENT
  Age: 63 Year
  Sex: Female

DRUGS (1)
  1. XALATAN [Suspect]
     Indication: GLAUCOMA
     Dosage: 1 GTT, 1X/DAY
     Route: 047
     Dates: start: 20121201

REACTIONS (3)
  - Oropharyngeal pain [Recovered/Resolved]
  - Non-cardiac chest pain [Recovered/Resolved]
  - Nasopharyngitis [Unknown]
